FAERS Safety Report 6288732-4 (Version None)
Quarter: 2009Q3

REPORT INFORMATION
  Report Type: 
  Country: None (occurrence: None)
  Receive Date: 20090729
  Receipt Date: 20090723
  Transmission Date: 20100115
  Serious: Yes (Hospitalization)
  Sender: FDA-Public Use
  Company Number: MX-BRISTOL-MYERS SQUIBB COMPANY-14715635

PATIENT
  Age: 55 Year
  Sex: Male

DRUGS (1)
  1. REYATAZ [Suspect]

REACTIONS (1)
  - RENAL FAILURE ACUTE [None]
